FAERS Safety Report 11099275 (Version 1)
Quarter: 2015Q2

REPORT INFORMATION
  Report Type: Spontaneous
  Country: GB (occurrence: GB)
  Receive Date: 20150508
  Receipt Date: 20150508
  Transmission Date: 20150821
  Serious: Yes (Life-Threatening, Hospitalization, Other)
  Sender: FDA-Public Use
  Company Number: GB-TEVA-560341ACC

PATIENT
  Age: 73 Year
  Sex: Female

DRUGS (2)
  1. NITROFURANTOIN. [Suspect]
     Active Substance: NITROFURANTOIN
     Indication: URINARY TRACT INFECTION
     Route: 048
     Dates: start: 20141021
  2. NITROFURANTOIN. [Suspect]
     Active Substance: NITROFURANTOIN
     Indication: PROPHYLAXIS
     Dosage: 50 MILLIGRAM DAILY; NIGHTLY
     Route: 048
     Dates: start: 20150224, end: 20150325

REACTIONS (5)
  - Emphysema [Unknown]
  - Interstitial lung disease [Unknown]
  - Dyspnoea [Unknown]
  - Sepsis [Unknown]
  - Cough [Unknown]
